FAERS Safety Report 20453964 (Version 1)
Quarter: 2022Q1

REPORT INFORMATION
  Report Type: Spontaneous
  Country: US (occurrence: US)
  Receive Date: 20220210
  Receipt Date: 20220210
  Transmission Date: 20220423
  Serious: No
  Sender: FDA-Public Use
  Company Number: US-ORGANON-O2202USA000149

PATIENT
  Sex: Female

DRUGS (1)
  1. NEXPLANON [Suspect]
     Active Substance: ETONOGESTREL
     Dosage: ONE EVERY THREE YEARS
     Route: 059
     Dates: start: 201810

REACTIONS (5)
  - Complication associated with device [Unknown]
  - Device issue [Unknown]
  - Device deployment issue [Unknown]
  - No adverse event [Unknown]
  - Incorrect product administration duration [Unknown]
